FAERS Safety Report 8009209-1 (Version None)
Quarter: 2011Q4

REPORT INFORMATION
  Report Type: 
  Country: None (occurrence: None)
  Receive Date: 20111221
  Receipt Date: 20111206
  Transmission Date: 20120403
  Serious: Yes (Other)
  Sender: FDA-Public Use
  Company Number: 1000025748

PATIENT
  Age: 31 Year
  Sex: Female

DRUGS (5)
  1. HUMALOG [Concomitant]
  2. LEVOTHYROXINE SODIUM [Concomitant]
  3. LANTUS (INSULIN GLARGINE) (INSULIN GLARGINE) [Concomitant]
  4. MEDIATOR (BENFLUOREX HYDROCHLORIDE) [Suspect]
     Indication: HYPERTRIGLYCERIDAEMIA
     Dosage: ORAL
     Route: 048
  5. ESCITALOPRAM OXALATE [Suspect]
     Indication: DEPRESSION
     Dosage: ORAL
     Route: 048

REACTIONS (3)
  - PULMONARY HYPERTENSION [None]
  - TRICUSPID VALVE INCOMPETENCE [None]
  - PULMONARY ARTERIAL PRESSURE INCREASED [None]
